FAERS Safety Report 21128048 (Version 1)
Quarter: 2022Q3

REPORT INFORMATION
  Report Type: Spontaneous
  Country: US (occurrence: US)
  Receive Date: 20220725
  Receipt Date: 20220725
  Transmission Date: 20221026
  Serious: No
  Sender: FDA-Public Use
  Company Number: US-ABBVIE-22K-163-4418780-00

PATIENT
  Age: 81 Year
  Sex: Female

DRUGS (1)
  1. LEVOTHYROXINE [Suspect]
     Active Substance: LEVOTHYROXINE
     Indication: Product used for unknown indication
     Route: 048

REACTIONS (5)
  - Hot flush [Unknown]
  - Feeling cold [Unknown]
  - Irritability [Unknown]
  - Fatigue [Unknown]
  - Product administration error [Not Recovered/Not Resolved]
